FAERS Safety Report 26012504 (Version 1)
Quarter: 2025Q4

REPORT INFORMATION
  Report Type: Spontaneous
  Country: GB (occurrence: GB)
  Receive Date: 20251107
  Receipt Date: 20251107
  Transmission Date: 20260117
  Serious: Yes (Other)
  Sender: ELI LILLY AND COMPANY
  Company Number: None

PATIENT
  Sex: Female

DRUGS (1)
  1. MOUNJARO [Suspect]
     Active Substance: TIRZEPATIDE
     Indication: Weight control
     Dosage: UNK UNK, UNKNOWN
     Route: 065
     Dates: start: 202506, end: 20251031

REACTIONS (3)
  - Hypoacusis [Recovering/Resolving]
  - Ear discomfort [Unknown]
  - Tinnitus [Unknown]

NARRATIVE: CASE EVENT DATE: 20251031
